FAERS Safety Report 15098197 (Version 4)
Quarter: 2018Q3

REPORT INFORMATION
  Report Type: Spontaneous
  Country: US (occurrence: US)
  Receive Date: 20180702
  Receipt Date: 20180817
  Transmission Date: 20181010
  Serious: Yes (Hospitalization)
  Sender: FDA-Public Use
  Company Number: US-OTSUKA-2018_017392

PATIENT
  Sex: Male

DRUGS (3)
  1. ABILIFY [Suspect]
     Active Substance: ARIPIPRAZOLE
     Indication: SCHIZOPHRENIA
     Dosage: 15 MG, QD
     Route: 065
  2. THORAZINE [Suspect]
     Active Substance: CHLORPROMAZINE
     Indication: SCHIZOPHRENIA
     Dosage: UNK
     Route: 065
  3. ABILIFY MAINTENA [Suspect]
     Active Substance: ARIPIPRAZOLE
     Indication: SCHIZOPHRENIA
     Dosage: UNK, QM
     Route: 065

REACTIONS (11)
  - Inflammation [Unknown]
  - Hyperphagia [Unknown]
  - Drug monitoring procedure incorrectly performed [Unknown]
  - Weight increased [Unknown]
  - Hyperhidrosis [Unknown]
  - Drug effect incomplete [Unknown]
  - Abnormal behaviour [Unknown]
  - Hospitalisation [Unknown]
  - Insomnia [Unknown]
  - Anger [Unknown]
  - Muscle spasms [Unknown]
